FAERS Safety Report 7911495-0 (Version None)
Quarter: 2011Q4

REPORT INFORMATION
  Report Type: 
  Country: None (occurrence: None)
  Receive Date: 20111109
  Receipt Date: 20111031
  Transmission Date: 20120403
  Serious: Yes (Hospitalization)
  Sender: FDA-Public Use
  Company Number: 2011MA016010

PATIENT
  Age: 46 Year
  Sex: Female

DRUGS (4)
  1. LOXAPINE [Suspect]
     Indication: PRODUCT USED FOR UNKNOWN INDICATION
  2. TROPATEPINE [Suspect]
     Indication: PRODUCT USED FOR UNKNOWN INDICATION
  3. CHLORPROMAZINE HYDROCHLORIDE CONCENTRATE [Suspect]
     Indication: PRODUCT USED FOR UNKNOWN INDICATION
  4. TRIHEXYPHENIDYL HCL [Suspect]
     Indication: PRODUCT USED FOR UNKNOWN INDICATION

REACTIONS (1)
  - ILEUS PARALYTIC [None]
